FAERS Safety Report 7763748-7 (Version None)
Quarter: 2011Q3

REPORT INFORMATION
  Report Type: 
  Country: None (occurrence: None)
  Receive Date: 20110921
  Receipt Date: 20110912
  Transmission Date: 20111222
  Serious: Yes (Other)
  Sender: FDA-Public Use
  Company Number: US-SHIRE-ALL1-2011-03398

PATIENT
  Sex: Male
  Weight: 39.002 kg

DRUGS (3)
  1. VYVANSE [Suspect]
     Dosage: 70 MG, OTHER(WEEKDAYS)
     Route: 048
     Dates: start: 20090101
  2. VYVANSE [Suspect]
     Dosage: 50 UNK, OTHER (ON THE WEEKENDS)
     Route: 048
     Dates: start: 20090101
  3. VYVANSE [Suspect]
     Indication: ATTENTION DEFICIT/HYPERACTIVITY DISORDER
     Dosage: 70 MG, 1X/DAY:QD
     Route: 048
     Dates: start: 20080701, end: 20090101

REACTIONS (8)
  - DYSPHEMIA [None]
  - CARDIAC MURMUR [None]
  - APHONIA [None]
  - POLYP [None]
  - NEOPLASM [None]
  - DYSPHONIA [None]
  - BODY HEIGHT BELOW NORMAL [None]
  - GROWTH RETARDATION [None]
